FAERS Safety Report 8495565-7 (Version None)
Quarter: 2012Q3

REPORT INFORMATION
  Report Type: 
  Country: None (occurrence: None)
  Receive Date: 20120709
  Receipt Date: 20120628
  Transmission Date: 20120928
  Serious: Yes (Death)
  Sender: FDA-Public Use
  Company Number: DE-ROCHE-1072341

PATIENT
  Age: 83 Year
  Sex: Male
  Weight: 68 kg

DRUGS (1)
  1. MABTHERA [Suspect]
     Indication: RHEUMATOID ARTHRITIS
     Dosage: DATE OF LAST DOSE PRIOR TO EVENT WAS ON 14/SEP/2011
     Route: 042
     Dates: start: 20100520

REACTIONS (2)
  - RESPIRATORY FAILURE [None]
  - NEOPLASM MALIGNANT [None]
